FAERS Safety Report 7451779-6 (Version None)
Quarter: 2011Q2

REPORT INFORMATION
  Report Type: 
  Country: None (occurrence: None)
  Receive Date: 20110502
  Receipt Date: 20100525
  Transmission Date: 20111010
  Serious: No
  Sender: FDA-Public Use
  Company Number: US-ASTRAZENECA-2010SE24101

PATIENT
  Sex: Female
  Weight: 74.8 kg

DRUGS (11)
  1. MAGNESIUM [Concomitant]
  2. FOSAMAX [Concomitant]
  3. FISH OIL [Concomitant]
  4. NEXIUM [Suspect]
     Route: 048
  5. MULTI VIT [Concomitant]
  6. FELODIPINE [Concomitant]
  7. GABAPENTIN [Concomitant]
  8. ASPIRIN [Concomitant]
  9. IRON SUPPLEMENT [Concomitant]
  10. ZINC [Concomitant]
  11. POTASSIUM [Concomitant]

REACTIONS (2)
  - NAUSEA [None]
  - DRUG DOSE OMISSION [None]
